FAERS Safety Report 18478340 (Version 1)
Quarter: 2020Q4

REPORT INFORMATION
  Report Type: Spontaneous
  Country: US (occurrence: US)
  Receive Date: 20201109
  Receipt Date: 20201109
  Transmission Date: 20210114
  Serious: No
  Sender: FDA-Public Use
  Company Number: US-BIOGEN-2020BI00943747

PATIENT
  Sex: Female

DRUGS (9)
  1. ZINC SULFATE. [Concomitant]
     Active Substance: ZINC SULFATE
     Route: 065
  2. MOTRIN [Concomitant]
     Active Substance: IBUPROFEN
     Route: 065
  3. ADVIL MIGRAINE [Concomitant]
     Active Substance: IBUPROFEN
     Route: 065
  4. AVONEX [Suspect]
     Active Substance: INTERFERON BETA-1A
  5. XANAX XR [Concomitant]
     Active Substance: ALPRAZOLAM
     Route: 065
  6. AVONEX [Suspect]
     Active Substance: INTERFERON BETA-1A
     Indication: MULTIPLE SCLEROSIS
     Route: 030
     Dates: start: 2015
  7. AVONEX [Suspect]
     Active Substance: INTERFERON BETA-1A
  8. VICODIN [Concomitant]
     Active Substance: ACETAMINOPHEN\HYDROCODONE BITARTRATE
     Route: 065
  9. AVONEX [Suspect]
     Active Substance: INTERFERON BETA-1A

REACTIONS (1)
  - Nasopharyngitis [Unknown]
